FAERS Safety Report 17691907 (Version 2)
Quarter: 2020Q3

REPORT INFORMATION
  Report Type: Spontaneous
  Country: US (occurrence: US)
  Receive Date: 20200422
  Receipt Date: 20200715
  Transmission Date: 20201102
  Serious: Yes (Hospitalization)
  Sender: FDA-Public Use
  Company Number: US-CADILA HEALTHCARE LIMITED-US-ZYDUS-048092

PATIENT

DRUGS (1)
  1. BOSENTAN 125 MG TABLETS [Suspect]
     Active Substance: BOSENTAN
     Indication: PULMONARY ARTERIAL HYPERTENSION
     Dosage: 125 MG TWICE DAILY
     Route: 048

REACTIONS (6)
  - Urinary tract infection [Recovered/Resolved]
  - Living in residential institution [Recovered/Resolved]
  - Contusion [Recovered/Resolved]
  - Cerebrovascular accident [Recovered/Resolved]
  - International normalised ratio increased [Recovered/Resolved]
  - Hospitalisation [Recovered/Resolved]

NARRATIVE: CASE EVENT DATE: 202002
